FAERS Safety Report 7212738-1 (Version None)
Quarter: 2010Q4

REPORT INFORMATION
  Report Type: 
  Country: None (occurrence: None)
  Receive Date: 20101227
  Receipt Date: 20101213
  Transmission Date: 20110411
  Serious: Yes (Death)
  Sender: FDA-Public Use
  Company Number: 08-198

PATIENT
  Age: 43 Year
  Sex: Male

DRUGS (2)
  1. FAZACLO ODT [Suspect]
     Dosage: 600 MG DAILY
  2. METHADONE [Concomitant]

REACTIONS (4)
  - ACCIDENTAL DEATH [None]
  - ACCIDENTAL POISONING [None]
  - DRUG TOXICITY [None]
  - THERAPEUTIC AGENT TOXICITY [None]
